FAERS Safety Report 22028962 (Version 1)
Quarter: 2023Q1

REPORT INFORMATION
  Report Type: Spontaneous
  Country: ES (occurrence: ES)
  Receive Date: 20230223
  Receipt Date: 20230223
  Transmission Date: 20230417
  Serious: Yes (Hospitalization)
  Sender: FDA-Public Use
  Company Number: None

PATIENT
  Age: 16 Year
  Sex: Female

DRUGS (1)
  1. MIRTAZAPINE [Suspect]
     Active Substance: MIRTAZAPINE
     Indication: Suicide attempt
     Dosage: 14 TABLETS (210MG), MIRTAZAPINA (2704A)
     Route: 065
     Dates: start: 20230124, end: 20230124

REACTIONS (8)
  - Tachypnoea [Recovered/Resolved]
  - Nystagmus [Recovered/Resolved]
  - Miosis [Recovered/Resolved]
  - Clonus [Recovered/Resolved]
  - Lethargy [Recovered/Resolved]
  - Hyperreflexia [Recovered/Resolved]
  - Tachycardia [Recovered/Resolved]
  - Serotonin syndrome [Recovered/Resolved]

NARRATIVE: CASE EVENT DATE: 20230124
